FAERS Safety Report 8941377 (Version 2)
Quarter: 2012Q4

REPORT INFORMATION
  Report Type: 
  Country: DE (occurrence: DE)
  Receive Date: 20121203
  Receipt Date: 20121221
  Transmission Date: 20130627
  Serious: Yes (Other)
  Sender: FDA-Public Use
  Company Number: DE-ROCHE-1158624

PATIENT
  Sex: Female
  Weight: 59.2 kg

DRUGS (2)
  1. AVASTIN [Suspect]
     Indication: ASTROCYTOMA
     Route: 042
     Dates: start: 20121114
  2. AVASTIN [Suspect]
     Indication: OFF LABEL USE

REACTIONS (3)
  - Convulsion [Recovered/Resolved]
  - Erythema [Recovered/Resolved]
  - Headache [Recovered/Resolved]
